FAERS Safety Report 15034546 (Version 3)
Quarter: 2018Q3

REPORT INFORMATION
  Report Type: Spontaneous
  Country: FR (occurrence: FR)
  Receive Date: 20180620
  Receipt Date: 20180917
  Transmission Date: 20181010
  Serious: Yes (Hospitalization, Other)
  Sender: FDA-Public Use
  Company Number: FR-009507513-1806FRA007979

PATIENT
  Age: 69 Year
  Sex: Male
  Weight: 132 kg

DRUGS (16)
  1. DOLIPRANE [Concomitant]
     Active Substance: ACETAMINOPHEN
     Dosage: 1G, 4 TIMES A DAY (1?1?1?1)
  2. HYDROCHLOROTHIAZIDE (+) VALSARTAN [Concomitant]
     Active Substance: HYDROCHLOROTHIAZIDE\VALSARTAN
     Dosage: 12.5/160 MG, ONCE DAILY (1?0?0)
  3. CALCIDOSE VITAMINE D [Concomitant]
     Active Substance: CALCIUM\CHOLECALCIFEROL
     Dosage: UNK
  4. KEYTRUDA [Suspect]
     Active Substance: PEMBROLIZUMAB
     Indication: TRANSITIONAL CELL CARCINOMA METASTATIC
     Dosage: 200 MG, UNK
     Route: 042
     Dates: start: 20180503, end: 20180524
  5. VENTOLINE (ALBUTEROL) [Concomitant]
     Active Substance: ALBUTEROL
     Dosage: 2 PUFFS IF NEEDED
  6. MOVICOL [Concomitant]
     Active Substance: POLYETHYLENE GLYCOL 3350\POTASSIUM CHLORIDE\SODIUM BICARBONATE\SODIUM CHLORIDE
     Dosage: UNK
  7. BISOCE [Concomitant]
     Active Substance: BISOPROLOL
     Dosage: 1.25 MG, TWICE DAILY (1?0?1)
  8. LEVOCETIRIZINE [Concomitant]
     Active Substance: LEVOCETIRIZINE
     Dosage: 5 MG, ONCE DAILY (1?0?0)
  9. IZALGI [Concomitant]
     Active Substance: ACETAMINOPHEN\OPIUM
     Dosage: 2 DOSGE FORM (DF), ONCE DAILY (0?0?0?2)
  10. OXYNORM [Concomitant]
     Active Substance: OXYCODONE HYDROCHLORIDE
     Dosage: 80 MG, TWICE DAILY (1?0?1)
  11. XGEVA [Concomitant]
     Active Substance: DENOSUMAB
     Dosage: UNK
  12. DEXERYL TABLETS [Concomitant]
     Dosage: UNK
  13. FORADIL [Concomitant]
     Active Substance: FORMOTEROL FUMARATE
     Dosage: 1 DOSAGE FORM (DF), TWICE DAILY (1?0?1)
  14. FUROSEMIDE. [Concomitant]
     Active Substance: FUROSEMIDE
     Dosage: 40 MG, ONCE DAILY (1?0?0)
  15. OXYNORMORO [Concomitant]
     Active Substance: OXYCODONE HYDROCHLORIDE
     Dosage: 1 DOSAGE FORM (DF), EVERY 4 HOURS
  16. PRIMPERAN [Concomitant]
     Active Substance: METOCLOPRAMIDE HYDROCHLORIDE
     Dosage: 1 TO 2 DOSAGE FORM (DF), THREE TIMES A DAY

REACTIONS (2)
  - Immune-mediated adverse reaction [Unknown]
  - Thrombocytopenia [Not Recovered/Not Resolved]

NARRATIVE: CASE EVENT DATE: 20180503
